FAERS Safety Report 5620471-2 (Version None)
Quarter: 2008Q1

REPORT INFORMATION
  Report Type: 
  Country: None (occurrence: None)
  Receive Date: 20080208
  Receipt Date: 20080207
  Transmission Date: 20080703
  Serious: Yes (Life-Threatening, Hospitalization)
  Sender: FDA-Public Use
  Company Number: GB-BOEHRINGER INGELHEIM GMBH, GERMANY-2008-UK-00534UK

PATIENT
  Age: 86 Year
  Sex: Female
  Weight: 70 kg

DRUGS (8)
  1. DIPYRIDAMOLE [Suspect]
     Indication: TRANSIENT ISCHAEMIC ATTACK
     Dosage: 100MG: 3 / 2 DAYS
     Route: 048
     Dates: start: 20080118, end: 20080119
  2. ASPIRIN [Concomitant]
     Indication: MYOCARDIAL ISCHAEMIA
     Dosage: ONCE DAILY
     Route: 048
  3. ATENOLOL [Concomitant]
     Indication: MYOCARDIAL ISCHAEMIA
     Dosage: ONCE DAILY
     Route: 048
  4. ATORVASTATIN CALCIUM [Concomitant]
     Indication: MYOCARDIAL ISCHAEMIA
     Dosage: ONCE DAILY
     Route: 048
  5. CLOPIDOGREL [Concomitant]
     Indication: MYOCARDIAL ISCHAEMIA
     Dosage: ONCE DAILY
     Route: 048
  6. DILTIAZEM [Concomitant]
     Indication: MYOCARDIAL ISCHAEMIA
     Dosage: ONCE DAILY
     Route: 048
  7. ISMN [Concomitant]
     Indication: MYOCARDIAL ISCHAEMIA
     Dosage: TWICE DAILY
     Route: 048
  8. MIRTAZAPINE [Concomitant]
     Indication: DEPRESSION
     Dosage: ONCE DAILY
     Route: 048

REACTIONS (3)
  - ACUTE MYOCARDIAL INFARCTION [None]
  - CHEST PAIN [None]
  - TROPONIN I INCREASED [None]
